FAERS Safety Report 10414168 (Version 1)
Quarter: 2014Q3

REPORT INFORMATION
  Report Type: Spontaneous
  Country: FR (occurrence: None)
  Receive Date: 20140826
  Receipt Date: 20140826
  Transmission Date: 20150326
  Serious: Yes (Other)
  Sender: FDA-Public Use
  Company Number: 7315309

PATIENT
  Age: 70 Year
  Sex: Female

DRUGS (2)
  1. LEVOTHYROX 175 (LEVOTHYROXINE SODIUM) (175 MICROGRAM, TABLET) (EVOTHYRXINE SODIUM) [Suspect]
     Active Substance: LEVOTHYROXINE
     Indication: THYROID NODULE REMOVAL
     Dosage: FASTING IN THE MORNING
     Dates: start: 2001
  2. CYNOMEL (LIOTHYRONINE SODIUM) (TABLET) (LIOTHYRONINE SODIUM) [Concomitant]

REACTIONS (2)
  - Pulmonary embolism [None]
  - Palpitations [None]

NARRATIVE: CASE EVENT DATE: 201402
